FAERS Safety Report 5939876-5 (Version None)
Quarter: 2008Q4

REPORT INFORMATION
  Report Type: 
  Country: None (occurrence: None)
  Receive Date: 20081030
  Receipt Date: 20081030
  Transmission Date: 20090506
  Serious: Yes (Other)
  Sender: FDA-Public Use
  Company Number: None

PATIENT
  Sex: Female
  Weight: 54.4316 kg

DRUGS (1)
  1. DOXIL [Suspect]
     Indication: ENDOMETRIAL CANCER
     Dosage: 78MG Q4W IV
     Route: 042
     Dates: start: 20080512, end: 20080929

REACTIONS (4)
  - BLISTER [None]
  - ERYTHEMA [None]
  - RASH [None]
  - SCAB [None]
